FAERS Safety Report 4594026-5 (Version None)
Quarter: 2005Q1

REPORT INFORMATION
  Report Type: 
  Country: None (occurrence: None)
  Receive Date: 20050218
  Receipt Date: 20050202
  Transmission Date: 20050727
  Serious: Yes (Death)
  Sender: FDA-Public Use
  Company Number: 2005-DE-00414GD

PATIENT

DRUGS (6)
  1. SERTRALINE HCL [Suspect]
  2. TRAZODONE (TRAZODONE HYDROCHLORIDE) [Suspect]
  3. METHADONE HCL [Concomitant]
  4. SSRI (SSRI) [Suspect]
  5. TRICYCLIC ANTIDEPRESSANTS (TRICYCLIC ANTIDEPRESSANTS) [Suspect]
  6. CITALOPRAM HYDROBROMIDE [Suspect]

REACTIONS (6)
  - ACCIDENT [None]
  - ACCIDENTAL DEATH [None]
  - ACCIDENTAL OVERDOSE [None]
  - COMPLETED SUICIDE [None]
  - DRUG TOXICITY [None]
  - UNEVALUABLE EVENT [None]
